FAERS Safety Report 5248116-4 (Version None)
Quarter: 2007Q1

REPORT INFORMATION
  Report Type: 
  Country: None (occurrence: None)
  Receive Date: 20070227
  Receipt Date: 20060612
  Transmission Date: 20070707
  Serious: No
  Sender: FDA-Public Use
  Company Number: US-BRISTOL-MYERS SQUIBB COMPANY-13002654

PATIENT
  Age: 46 Year
  Sex: Female
  Weight: 82 kg

DRUGS (3)
  1. GLUCOPHAGE [Suspect]
     Route: 048
  2. METFORMIN HCL [Suspect]
  3. LESCOL [Concomitant]

REACTIONS (6)
  - ARTHRALGIA [None]
  - ASTHENIA [None]
  - FATIGUE [None]
  - MUSCLE ATROPHY [None]
  - NAUSEA [None]
  - WEIGHT DECREASED [None]
